FAERS Safety Report 5068214-8 (Version None)
Quarter: 2006Q3

REPORT INFORMATION
  Report Type: 
  Country: None (occurrence: None)
  Receive Date: 20060802
  Receipt Date: 20050606
  Transmission Date: 20061208
  Serious: No
  Sender: FDA-Public Use
  Company Number: US-BRISTOL-MYERS SQUIBB COMPANY-12994331

PATIENT
  Age: 64 Year
  Sex: Female
  Weight: 56 kg

DRUGS (6)
  1. COUMADIN [Suspect]
     Indication: ATRIAL FIBRILLATION
     Dosage: 2.5 MG X 6 DAYS/WEEK + 5.0 MG X 1 DAY/WEEK; INTERRUPTED ON UNSPECIFIED DATE, RESTARTED NOV-2004
  2. BETAPACE [Suspect]
  3. PACERONE [Suspect]
     Dates: start: 20041101
  4. MULTI-VITAMIN [Concomitant]
  5. VITAMIN E [Concomitant]
  6. CALCIUM + MAGNESIUM [Concomitant]

REACTIONS (1)
  - ALOPECIA [None]
